FAERS Safety Report 9051957 (Version 1)
Quarter: 2013Q1

REPORT INFORMATION
  Report Type: Report from Study
  Country: CA (occurrence: CA)
  Receive Date: 20130207
  Receipt Date: 20130207
  Transmission Date: 20140127
  Serious: Yes (Other)
  Sender: FDA-Public Use
  Company Number: CA-JNJFOC-20130116491

PATIENT
  Age: 0 None
  Sex: Female
  Weight: 2.18 kg

DRUGS (3)
  1. REMICADE [Suspect]
     Indication: FOETAL EXPOSURE DURING PREGNANCY
     Dosage: PATIENT^S MOTHER HAD INFUSION ONE WEEK AFTER THE DELIVERY
     Route: 064
     Dates: start: 201212
  2. REMICADE [Suspect]
     Indication: FOETAL EXPOSURE DURING PREGNANCY
     Route: 064
  3. REMICADE [Suspect]
     Indication: FOETAL EXPOSURE DURING PREGNANCY
     Dosage: PATIENT^S MOTHER HAD DOUBLE DOSAGE 6 VIALS INSTEAD OF 3
     Route: 064
     Dates: start: 2012

REACTIONS (3)
  - Low birth weight baby [Unknown]
  - Breech presentation [Unknown]
  - Premature baby [Not Recovered/Not Resolved]
